FAERS Safety Report 18288138 (Version 4)
Quarter: 2020Q4

REPORT INFORMATION
  Report Type: Report from Study
  Country: None (occurrence: US)
  Receive Date: 20200921
  Receipt Date: 20201217
  Transmission Date: 20210113
  Serious: Yes (Hospitalization, Other)
  Sender: FDA-Public Use
  Company Number: US-INSMED, INC.-US-INS-20-01405

PATIENT
  Age: 77 Year
  Sex: Male

DRUGS (3)
  1. ARIKAYCE [Suspect]
     Active Substance: AMIKACIN
     Route: 055
     Dates: start: 2020, end: 2020
  2. ARIKAYCE [Suspect]
     Active Substance: AMIKACIN
     Route: 055
     Dates: start: 2020, end: 2020
  3. ARIKAYCE [Suspect]
     Active Substance: AMIKACIN
     Indication: MYCOBACTERIUM AVIUM COMPLEX INFECTION
     Route: 055
     Dates: start: 2020, end: 2020

REACTIONS (15)
  - Productive cough [Unknown]
  - Hypersensitivity [Unknown]
  - Pneumothorax [Unknown]
  - Ill-defined disorder [Unknown]
  - Sputum increased [Unknown]
  - Chronic obstructive pulmonary disease [Unknown]
  - Cough [Unknown]
  - Hospitalisation [Unknown]
  - Decreased appetite [Unknown]
  - Dyspnoea [Unknown]
  - Urticaria [Unknown]
  - Dysgeusia [Unknown]
  - Weight decreased [Unknown]
  - Wheezing [Unknown]
  - Bronchospasm [Unknown]

NARRATIVE: CASE EVENT DATE: 2020
